FAERS Safety Report 16763854 (Version 3)
Quarter: 2019Q3

REPORT INFORMATION
  Report Type: Report from Study
  Country: US (occurrence: US)
  Receive Date: 20190902
  Receipt Date: 20190913
  Transmission Date: 20191005
  Serious: Yes (Hospitalization)
  Sender: FDA-Public Use
  Company Number: US-AVEXISPRA-CTR-AVXS12019-0013

PATIENT
  Age: 1 Year
  Sex: Female
  Weight: 13.5 kg

DRUGS (2)
  1. PREDNISOLONE. [Concomitant]
     Active Substance: PREDNISOLONE
     Dosage: UNK
  2. AVXS-101 [Suspect]
     Active Substance: ONASEMNOGENE ABEPARVOVEC
     Indication: SPINAL MUSCULAR ATROPHY
     Dosage: UNK, SINGLE
     Route: 042
     Dates: start: 20190821, end: 20190821

REACTIONS (5)
  - Hepatic enzyme increased [Unknown]
  - Hypertension [Unknown]
  - Haematemesis [Unknown]
  - Platelet count decreased [Unknown]
  - Pneumonia mycoplasmal [Unknown]

NARRATIVE: CASE EVENT DATE: 2019
